FAERS Safety Report 8392257-X (Version None)
Quarter: 2012Q2

REPORT INFORMATION
  Report Type: 
  Country: None (occurrence: None)
  Receive Date: 20120529
  Receipt Date: 20120514
  Transmission Date: 20120825
  Serious: Yes (Other)
  Sender: FDA-Public Use
  Company Number: CN-ROCHE-1071173

PATIENT

DRUGS (2)
  1. ROFERON-A [Suspect]
     Indication: METASTATIC RENAL CELL CARCINOMA
     Dosage: 3 X106 IU/M2/D ON DAYS 2, 4, AND 6, WEEKS 1 TO 4.
     Route: 058
  2. ALDESLEUKIN [Suspect]
     Indication: METASTATIC RENAL CELL CARCINOMA
     Dosage: 10 X 10E6 IU/M2/D ON DAYS 1, 3, AND 5, WEEKS 1 TO 4
     Route: 058

REACTIONS (11)
  - HYPERSENSITIVITY [None]
  - CHILLS [None]
  - DIARRHOEA [None]
  - VOMITING [None]
  - ARRHYTHMIA [None]
  - OEDEMA [None]
  - RESPIRATORY DISTRESS [None]
  - PYREXIA [None]
  - ANAEMIA [None]
  - FATIGUE [None]
  - NAUSEA [None]
